FAERS Safety Report 8473572-8 (Version None)
Quarter: 2012Q2

REPORT INFORMATION
  Report Type: 
  Country: None (occurrence: None)
  Receive Date: 20120628
  Receipt Date: 20110629
  Transmission Date: 20120825
  Serious: Yes (Other)
  Sender: FDA-Public Use
  Company Number: US-MYLANLABS-2011S1011919

PATIENT
  Age: 33 Year
  Sex: Male
  Weight: 73.03 kg

DRUGS (10)
  1. KLONOPIN [Concomitant]
  2. CLOZAPINE [Suspect]
     Route: 048
     Dates: start: 20040915, end: 20110604
  3. CLOZAPINE [Suspect]
     Route: 048
     Dates: start: 20110607
  4. CLOZAPINE [Suspect]
     Route: 048
     Dates: start: 20040915, end: 20110604
  5. CLOZAPINE [Suspect]
     Route: 048
     Dates: start: 20110607
  6. COGENTIN [Concomitant]
  7. CLOZAPINE [Suspect]
     Route: 048
     Dates: start: 20110607
  8. CLOZAPINE [Suspect]
     Indication: MENTAL RETARDATION
     Route: 048
     Dates: start: 20040915, end: 20110604
  9. CLOZAPINE [Suspect]
     Route: 048
     Dates: start: 20110607
  10. CLOZAPINE [Suspect]
     Indication: AGGRESSION
     Route: 048
     Dates: start: 20040915, end: 20110604

REACTIONS (1)
  - GRANULOCYTOPENIA [None]
